FAERS Safety Report 11824515 (Version 2)
Quarter: 2016Q1

REPORT INFORMATION
  Report Type: Report from Study
  Country: US (occurrence: US)
  Receive Date: 20151210
  Receipt Date: 20160105
  Transmission Date: 20160525
  Serious: Yes (Hospitalization, Other)
  Sender: FDA-Public Use
  Company Number: US-TAKEDA-2015MPI008150

PATIENT
  Age: 58 Year
  Sex: Female
  Weight: 73 kg

DRUGS (2)
  1. VORINOSTAT [Suspect]
     Active Substance: VORINOSTAT
     Indication: OVARIAN CANCER METASTATIC
     Dosage: UNK
     Route: 048
     Dates: start: 20151002, end: 20151119
  2. IXAZOMIB [Suspect]
     Active Substance: IXAZOMIB
     Indication: OVARIAN CANCER METASTATIC
     Dosage: 4 MG, QD
     Route: 048
     Dates: start: 20151002, end: 20151113

REACTIONS (2)
  - Anaemia [Recovering/Resolving]
  - Acute kidney injury [Recovered/Resolved]

NARRATIVE: CASE EVENT DATE: 20151201
